FAERS Safety Report 13706355 (Version 2)
Quarter: 2017Q3

REPORT INFORMATION
  Report Type: Spontaneous
  Country: US (occurrence: US)
  Receive Date: 20170630
  Receipt Date: 20170814
  Transmission Date: 20171127
  Serious: Yes (Death, Other)
  Sender: FDA-Public Use
  Company Number: US-BAYER-2017-119750

PATIENT
  Age: 73 Year
  Sex: Male

DRUGS (4)
  1. XOFIGO [Suspect]
     Active Substance: RADIUM RA-223 DICHLORIDE
     Indication: PROSTATE CANCER
  2. XOFIGO [Suspect]
     Active Substance: RADIUM RA-223 DICHLORIDE
     Indication: PROSTATE CANCER
  3. CANNABIS [Concomitant]
     Active Substance: CANNABIS SATIVA SUBSP. INDICA TOP
  4. MORPHINE [Concomitant]
     Active Substance: MORPHINE

REACTIONS (5)
  - Fatigue [None]
  - Gait disturbance [None]
  - Blood count abnormal [None]
  - Pain [None]
  - Death [Fatal]

NARRATIVE: CASE EVENT DATE: 20170712
